FAERS Safety Report 25388274 (Version 3)
Quarter: 2025Q2

REPORT INFORMATION
  Report Type: Report from Study
  Country: CA (occurrence: CA)
  Receive Date: 20250603
  Receipt Date: 20250625
  Transmission Date: 20250716
  Serious: Yes (Other)
  Sender: JOHNSON AND JOHNSON
  Company Number: CA-JNJFOC-20250426444

PATIENT
  Age: 46 Year
  Sex: Female
  Weight: 73 kg

DRUGS (2)
  1. SIMPONI [Suspect]
     Active Substance: GOLIMUMAB
     Indication: Psoriatic arthropathy
     Route: 041
     Dates: start: 20230529
  2. SIMPONI [Suspect]
     Active Substance: GOLIMUMAB
     Route: 041

REACTIONS (7)
  - Pneumonia [Unknown]
  - Arthralgia [Recovered/Resolved]
  - Fatigue [Recovered/Resolved]
  - Bronchitis [Unknown]
  - Night sweats [Not Recovered/Not Resolved]
  - Therapeutic response decreased [Unknown]
  - Menopause [Unknown]

NARRATIVE: CASE EVENT DATE: 20250417
